FAERS Safety Report 10749957 (Version 3)
Quarter: 2015Q3

REPORT INFORMATION
  Report Type: Spontaneous
  Country: US (occurrence: US)
  Receive Date: 20150129
  Receipt Date: 20150819
  Transmission Date: 20151125
  Serious: No
  Sender: FDA-Public Use
  Company Number: US-GILEAD-2015-0134482

PATIENT
  Age: 78 Year
  Sex: Male

DRUGS (17)
  1. FISH OIL [Concomitant]
     Active Substance: FISH OIL
  2. LEVOTHYROXINE. [Concomitant]
     Active Substance: LEVOTHYROXINE
  3. CENTRUM SILVER                     /02363801/ [Concomitant]
     Active Substance: VITAMINS
  4. PANTOPRAZOLE [Concomitant]
     Active Substance: PANTOPRAZOLE SODIUM
  5. LETAIRIS [Suspect]
     Active Substance: AMBRISENTAN
     Dosage: 5 MG, QD
     Route: 065
     Dates: start: 20141027
  6. XARELTO [Concomitant]
     Active Substance: RIVAROXABAN
  7. GLYBURIDE. [Concomitant]
     Active Substance: GLYBURIDE
  8. ZYTIGA [Concomitant]
     Active Substance: ABIRATERONE ACETATE
  9. LOSARTAN. [Concomitant]
     Active Substance: LOSARTAN
  10. ATENOLOL. [Concomitant]
     Active Substance: ATENOLOL
  11. VERAPAMIL [Suspect]
     Active Substance: VERAPAMIL HYDROCHLORIDE
     Indication: PRODUCT USED FOR UNKNOWN INDICATION
     Route: 065
  12. PREDNISONE. [Concomitant]
     Active Substance: PREDNISONE
  13. ATORVASTATIN [Concomitant]
     Active Substance: ATORVASTATIN
  14. LETAIRIS [Suspect]
     Active Substance: AMBRISENTAN
     Indication: PULMONARY ARTERIAL HYPERTENSION
     Dosage: 10 MG, QD
     Route: 065
     Dates: end: 20150116
  15. COENZYME Q10 [Concomitant]
     Active Substance: UBIDECARENONE
  16. STOOL SOFTENER [Concomitant]
     Active Substance: DOCUSATE CALCIUM
  17. ANAGRELIDE [Concomitant]
     Active Substance: ANAGRELIDE

REACTIONS (4)
  - Fatigue [Recovering/Resolving]
  - Feeling abnormal [Recovering/Resolving]
  - Confusional state [Recovering/Resolving]
  - Lethargy [Recovering/Resolving]
